FAERS Safety Report 6449237-0 (Version None)
Quarter: 2009Q4

REPORT INFORMATION
  Report Type: 
  Country: None (occurrence: None)
  Receive Date: 20091120
  Receipt Date: 20091111
  Transmission Date: 20100525
  Serious: Yes (Death, Other)
  Sender: FDA-Public Use
  Company Number: JP-BRISTOL-MYERS SQUIBB COMPANY-14856702

PATIENT
  Age: 83 Year
  Sex: Male

DRUGS (2)
  1. HYDREA [Suspect]
     Indication: POLYCYTHAEMIA VERA
     Route: 048
  2. STEROIDS [Suspect]

REACTIONS (6)
  - ANGIOCENTRIC LYMPHOMA [None]
  - IMMUNOSUPPRESSION [None]
  - LUNG NEOPLASM [None]
  - NON-SMALL CELL LUNG CANCER RECURRENT [None]
  - ORGANISING PNEUMONIA [None]
  - PULMONARY EMBOLISM [None]
